FAERS Safety Report 5161341-6 (Version None)
Quarter: 2006Q4

REPORT INFORMATION
  Report Type: 
  Country: None (occurrence: None)
  Receive Date: 20061130
  Receipt Date: 20060513
  Transmission Date: 20070319
  Serious: Yes (Hospitalization)
  Sender: FDA-Public Use
  Company Number: JP-ROCHE-448075

PATIENT
  Age: 32 Year
  Sex: Female
  Weight: 44 kg

DRUGS (5)
  1. PEG-INTERFERON A-2A (RO 25-8310) [Suspect]
     Route: 058
     Dates: start: 20060310, end: 20060331
  2. PEG-INTERFERON A-2A (RO 25-8310) [Suspect]
     Route: 058
     Dates: start: 20060416, end: 20060421
  3. PEG-INTERFERON A-2A (RO 25-8310) [Suspect]
     Route: 058
     Dates: start: 20060506, end: 20060506
  4. SHAKUYAKU-KANZO-TO [Concomitant]
     Route: 048
     Dates: start: 20060314, end: 20060407
  5. CLOBETASONE BUTYRATE [Concomitant]
     Route: 003
     Dates: start: 20060331

REACTIONS (23)
  - ALOPECIA [None]
  - BACK PAIN [None]
  - BRONCHITIS [None]
  - CHRONIC SINUSITIS [None]
  - DELUSION [None]
  - DIARRHOEA [None]
  - ERYTHEMA [None]
  - HALLUCINATION [None]
  - INCORRECT DOSE ADMINISTERED [None]
  - INFECTION TRANSMISSION VIA PERSONAL CONTACT [None]
  - INSOMNIA [None]
  - MEDICATION ERROR [None]
  - MUSCLE SPASMS [None]
  - NAUSEA [None]
  - ORAL DISCOMFORT [None]
  - PAIN [None]
  - PRURITUS GENERALISED [None]
  - PYREXIA [None]
  - ROAD TRAFFIC ACCIDENT [None]
  - SCHIZOPHRENIFORM DISORDER [None]
  - SELF-MEDICATION [None]
  - UPPER RESPIRATORY TRACT INFLAMMATION [None]
  - WHIPLASH INJURY [None]
